FAERS Safety Report 5761321-3 (Version None)
Quarter: 2008Q2

REPORT INFORMATION
  Report Type: 
  Country: None (occurrence: None)
  Receive Date: 20080606
  Receipt Date: 20080528
  Transmission Date: 20081010
  Serious: Yes (Hospitalization, Other)
  Sender: FDA-Public Use
  Company Number: GB-ROCHE-562564

PATIENT
  Sex: Male
  Weight: 109 kg

DRUGS (5)
  1. ORLISTAT [Suspect]
     Indication: OBESITY
     Route: 048
     Dates: start: 20080128
  2. LORATADINE [Concomitant]
     Indication: RHINITIS
     Dosage: ENTERED AS LORATIDINE. INDICATION: RHINITIS/HAY FEVER
     Route: 048
     Dates: start: 19980101
  3. SERETIDE [Concomitant]
     Indication: ASTHMA
     Dosage: DOSE ENTERED AS 500.
     Route: 055
     Dates: start: 20060101
  4. SERETIDE [Concomitant]
     Dosage: DOSE ENTERED AS 500.
     Route: 055
     Dates: start: 20060101
  5. ALBUTEROL [Concomitant]
     Indication: ASTHMA
     Route: 055
     Dates: start: 20000101

REACTIONS (3)
  - ASTHMA [None]
  - BRONCHIECTASIS [None]
  - LOWER RESPIRATORY TRACT INFECTION [None]
